FAERS Safety Report 8352897-0 (Version None)
Quarter: 2012Q2

REPORT INFORMATION
  Report Type: 
  Country: None (occurrence: None)
  Receive Date: 20120511
  Receipt Date: 20120507
  Transmission Date: 20120825
  Serious: Yes (Hospitalization, Other)
  Sender: FDA-Public Use
  Company Number: BR-BAYER-2012-014920

PATIENT
  Age: 91 Year
  Sex: Female
  Weight: 46 kg

DRUGS (5)
  1. CAPTOPRIL [Concomitant]
     Indication: HYPERTENSION
     Dosage: UNK
     Route: 048
     Dates: start: 20020101
  2. AVELOX [Suspect]
     Indication: NASOPHARYNGITIS
     Dosage: 1 DF, QD
     Route: 048
     Dates: start: 20120212, end: 20120213
  3. DABIGATRAN ETEXILATE [Concomitant]
     Indication: ANTICOAGULANT THERAPY
  4. DABIGATRAN ETEXILATE [Concomitant]
     Indication: CEREBRAL ISCHAEMIA
     Dosage: 75 MG, BID
     Route: 048
     Dates: start: 20111201
  5. METFORMIN HCL [Concomitant]
     Indication: DIABETES MELLITUS
     Dosage: 850 MG, UNK
     Route: 048
     Dates: start: 20080101

REACTIONS (14)
  - MALAISE [None]
  - FACE INJURY [None]
  - SUBCUTANEOUS HAEMATOMA [None]
  - DISORIENTATION [None]
  - MUSCULOSKELETAL PAIN [None]
  - HALLUCINATION [None]
  - MEMORY IMPAIRMENT [None]
  - INSOMNIA [None]
  - NIGHTMARE [None]
  - FALL [None]
  - DELUSIONAL PERCEPTION [None]
  - BALANCE DISORDER [None]
  - DELIRIUM [None]
  - PSYCHOMOTOR HYPERACTIVITY [None]
